FAERS Safety Report 9896533 (Version 2)
Quarter: 2014Q1

REPORT INFORMATION
  Report Type: Spontaneous
  Country: US (occurrence: US)
  Receive Date: 20140213
  Receipt Date: 20140213
  Transmission Date: 20141002
  Serious: No
  Sender: FDA-Public Use
  Company Number: US-BRISTOL-MYERS SQUIBB COMPANY-18856666

PATIENT
  Age: 64 Year
  Sex: Female
  Weight: 52.15 kg

DRUGS (4)
  1. ABATACEPT SUBQ INJECTION 125MG/ML [Suspect]
     Indication: RHEUMATOID ARTHRITIS
     Dosage: LAST INJECTION:29-APR-2013
     Route: 058
     Dates: start: 20130502, end: 20130506
  2. SULFASALAZINE [Concomitant]
  3. METHOTREXATE [Concomitant]
  4. PREDNISOLONE [Concomitant]

REACTIONS (4)
  - Rash [Recovering/Resolving]
  - Joint swelling [Unknown]
  - Sinusitis [Unknown]
  - Drug ineffective [Unknown]
